FAERS Safety Report 4369004-1 (Version None)
Quarter: 2004Q2

REPORT INFORMATION
  Report Type: 
  Country: None (occurrence: None)
  Receive Date: 20040527
  Receipt Date: 20040517
  Transmission Date: 20050107
  Serious: Yes (Hospitalization)
  Sender: FDA-Public Use
  Company Number: 2004-04-1686

PATIENT
  Age: 83 Year
  Sex: Female
  Weight: 90.7194 kg

DRUGS (31)
  1. SOLGANAL (AUROTHIOGLUCOSE) INJECTABLE SUSPENSION [Suspect]
     Indication: PEMPHIGUS
     Dosage: SEE IMAGE
     Route: 030
     Dates: start: 19990518, end: 19990518
  2. SOLGANAL (AUROTHIOGLUCOSE) INJECTABLE SUSPENSION [Suspect]
     Indication: PEMPHIGUS
     Dosage: SEE IMAGE
     Route: 030
     Dates: start: 19990524, end: 19990524
  3. SOLGANAL (AUROTHIOGLUCOSE) INJECTABLE SUSPENSION [Suspect]
     Indication: PEMPHIGUS
     Dosage: SEE IMAGE
     Route: 030
     Dates: start: 19990525, end: 19990525
  4. SOLGANAL (AUROTHIOGLUCOSE) INJECTABLE SUSPENSION [Suspect]
     Indication: PEMPHIGUS
     Dosage: SEE IMAGE
     Route: 030
     Dates: start: 19990602, end: 19990602
  5. SOLGANAL (AUROTHIOGLUCOSE) INJECTABLE SUSPENSION [Suspect]
     Indication: PEMPHIGUS
     Dosage: SEE IMAGE
     Route: 030
     Dates: start: 19990629, end: 19990629
  6. SOLGANAL (AUROTHIOGLUCOSE) INJECTABLE SUSPENSION [Suspect]
     Indication: PEMPHIGUS
     Dosage: SEE IMAGE
     Route: 030
     Dates: start: 19990802, end: 19990802
  7. SOLGANAL (AUROTHIOGLUCOSE) INJECTABLE SUSPENSION [Suspect]
     Indication: PEMPHIGUS
     Dosage: SEE IMAGE
     Route: 030
     Dates: start: 19990909, end: 19990809
  8. SOLGANAL (AUROTHIOGLUCOSE) INJECTABLE SUSPENSION [Suspect]
     Indication: PEMPHIGUS
     Dosage: SEE IMAGE
     Route: 030
     Dates: start: 19990816, end: 19990816
  9. SOLGANAL (AUROTHIOGLUCOSE) INJECTABLE SUSPENSION [Suspect]
     Indication: PEMPHIGUS
     Dosage: SEE IMAGE
     Route: 030
     Dates: start: 19990823, end: 19990823
  10. SOLGANAL (AUROTHIOGLUCOSE) INJECTABLE SUSPENSION [Suspect]
     Indication: PEMPHIGUS
     Dosage: SEE IMAGE
     Route: 030
     Dates: start: 19990907, end: 19990907
  11. SOLGANAL (AUROTHIOGLUCOSE) INJECTABLE SUSPENSION [Suspect]
     Indication: PEMPHIGUS
     Dosage: SEE IMAGE
     Route: 030
     Dates: start: 19990920, end: 19990920
  12. SOLGANAL (AUROTHIOGLUCOSE) INJECTABLE SUSPENSION [Suspect]
     Indication: PEMPHIGUS
     Dosage: SEE IMAGE
     Route: 030
     Dates: start: 19991004, end: 19991004
  13. SOLGANAL (AUROTHIOGLUCOSE) INJECTABLE SUSPENSION [Suspect]
     Indication: PEMPHIGUS
     Dosage: SEE IMAGE
     Route: 030
     Dates: start: 19991018, end: 19991018
  14. SOLGANAL (AUROTHIOGLUCOSE) INJECTABLE SUSPENSION [Suspect]
     Indication: PEMPHIGUS
     Dosage: SEE IMAGE
     Route: 030
     Dates: start: 19991025, end: 19991025
  15. SOLGANAL (AUROTHIOGLUCOSE) INJECTABLE SUSPENSION [Suspect]
     Indication: PEMPHIGUS
     Dosage: SEE IMAGE
     Route: 030
     Dates: start: 19991101, end: 19991101
  16. SOLGANAL (AUROTHIOGLUCOSE) INJECTABLE SUSPENSION [Suspect]
     Indication: PEMPHIGUS
     Dosage: SEE IMAGE
     Route: 030
     Dates: start: 19991108, end: 19991108
  17. SOLGANAL (AUROTHIOGLUCOSE) INJECTABLE SUSPENSION [Suspect]
     Indication: PEMPHIGUS
     Dosage: SEE IMAGE
     Route: 030
     Dates: start: 19991115, end: 19991115
  18. SOLGANAL (AUROTHIOGLUCOSE) INJECTABLE SUSPENSION [Suspect]
     Indication: PEMPHIGUS
     Dosage: SEE IMAGE
     Route: 030
     Dates: start: 20000621, end: 20000621
  19. SOLGANAL (AUROTHIOGLUCOSE) INJECTABLE SUSPENSION [Suspect]
     Indication: PEMPHIGUS
     Dosage: SEE IMAGE
     Route: 030
     Dates: start: 20000628, end: 20000628
  20. SOLGANAL (AUROTHIOGLUCOSE) INJECTABLE SUSPENSION [Suspect]
     Indication: PEMPHIGUS
     Dosage: SEE IMAGE
     Route: 030
     Dates: start: 20000705, end: 20000705
  21. PREDNISONE [Suspect]
     Indication: PEMPHIGUS
     Dosage: 2.5- 60 MG
     Dates: start: 20000121
  22. PREDNISONE [Suspect]
     Indication: PEMPHIGUS
     Dosage: 2.5- 60 MG
     Dates: start: 20000701
  23. NORVASC [Concomitant]
  24. GLUCOTROL XL [Concomitant]
  25. LEVOTHYROXINE SODIUM [Concomitant]
  26. NYSTATIN [Concomitant]
  27. PERDIEM [Concomitant]
  28. SINEMET [Concomitant]
  29. PENICILLIN [Concomitant]
  30. CALCIUM CARBONATE [Concomitant]
  31. V-CILLIN K [Concomitant]

REACTIONS (14)
  - BLOOD ALBUMIN DECREASED [None]
  - BLOOD URINE PRESENT [None]
  - DISEASE RECURRENCE [None]
  - EOSINOPHIL COUNT INCREASED [None]
  - LYMPHOCYTE COUNT DECREASED [None]
  - MONOCYTE COUNT INCREASED [None]
  - ORAL CANDIDIASIS [None]
  - PEMPHIGUS [None]
  - PROTEIN URINE PRESENT [None]
  - PURPURA [None]
  - RED BLOOD CELLS URINE POSITIVE [None]
  - SQUAMOUS CELL CARCINOMA [None]
  - THROMBOCYTOPENIA [None]
  - WHITE BLOOD CELLS URINE POSITIVE [None]
